FAERS Safety Report 7397971-0 (Version None)
Quarter: 2011Q2

REPORT INFORMATION
  Report Type: 
  Country: None (occurrence: None)
  Receive Date: 20110406
  Receipt Date: 20110324
  Transmission Date: 20111010
  Serious: Yes (Hospitalization, Other)
  Sender: FDA-Public Use
  Company Number: PHHY2011DK24447

PATIENT
  Age: 68 Year
  Sex: Female

DRUGS (8)
  1. CLOPIDOGREL BISULFATE [Concomitant]
     Dosage: UNK
     Dates: start: 20100215
  2. ZARATOR ^PFIZER^ [Suspect]
     Dosage: UNK
     Route: 048
     Dates: end: 20100426
  3. TRANDOLAPRIL [Concomitant]
  4. APIXABAN [Suspect]
     Dosage: 5 MG, BID
     Dates: start: 20100219
  5. ASPIRIN [Concomitant]
     Dosage: UNK
     Dates: start: 20100215
  6. CITALOPRAM [Suspect]
     Dosage: UNK
     Route: 048
     Dates: start: 20100219, end: 20101119
  7. SIMVASTATIN [Concomitant]
     Dosage: UNK
     Dates: start: 20100215, end: 20100426
  8. METOPROLOL [Concomitant]
     Dosage: UNK
     Dates: start: 20100215

REACTIONS (2)
  - ABDOMINAL PAIN [None]
  - LIVER FUNCTION TEST ABNORMAL [None]
